FAERS Safety Report 7367573-0 (Version None)
Quarter: 2011Q1

REPORT INFORMATION
  Report Type: 
  Country: None (occurrence: None)
  Receive Date: 20110322
  Receipt Date: 20110315
  Transmission Date: 20110831
  Serious: Yes (Hospitalization, Other)
  Sender: FDA-Public Use
  Company Number: GB-PFIZER INC-2011057397

PATIENT
  Age: 71 Year
  Sex: Male

DRUGS (20)
  1. PHENYTOIN [Suspect]
     Indication: CONVULSION
     Dosage: 300MG/DAY
     Route: 048
     Dates: start: 20110130, end: 20110213
  2. FLUCLOXACILLIN [Concomitant]
     Indication: INFECTION
  3. METRONIDAZOLE [Concomitant]
     Indication: BILE DUCT OBSTRUCTION
  4. PHENYTOIN SODIUM [Suspect]
     Indication: CONVULSION
     Dosage: 1 GRAM DAY ONE
     Route: 042
     Dates: start: 20110129, end: 20110129
  5. GENTAMICIN [Concomitant]
     Indication: CHOLANGITIS
  6. IPRATROPIUM BROMIDE [Concomitant]
  7. PREDNISOLONE [Concomitant]
  8. LAXIDO [Concomitant]
  9. AMOXICILLIN [Concomitant]
     Indication: BILE DUCT OBSTRUCTION
  10. DIHYDROCODEINE [Concomitant]
  11. METRONIDAZOLE [Concomitant]
     Indication: CHOLANGITIS
  12. SENNA [Concomitant]
  13. OMEPRAZOLE [Concomitant]
  14. SIMVASTATIN [Concomitant]
  15. LISINOPRIL [Concomitant]
  16. SALBUTAMOL [Concomitant]
  17. AMOXICILLIN [Concomitant]
     Indication: CHOLANGITIS
     Dosage: UNK
     Route: 042
  18. AMPICILLIN SODIUM/SULBACTAM SODIUM [Concomitant]
  19. GENTAMICIN [Concomitant]
     Indication: BILE DUCT OBSTRUCTION
  20. LACTULOSE [Concomitant]

REACTIONS (17)
  - ANTIDIURETIC HORMONE ABNORMALITY [None]
  - CONFUSIONAL STATE [None]
  - TOXICITY TO VARIOUS AGENTS [None]
  - BILE DUCT OBSTRUCTION [None]
  - ABDOMINAL TENDERNESS [None]
  - SOMNOLENCE [None]
  - TREMOR [None]
  - HEPATOTOXICITY [None]
  - NYSTAGMUS [None]
  - DYSARTHRIA [None]
  - HEPATIC ENZYME ABNORMAL [None]
  - COORDINATION ABNORMAL [None]
  - BALANCE DISORDER [None]
  - CHOLANGITIS [None]
  - INFECTION [None]
  - PNEUMONIA [None]
  - BLOOD SODIUM DECREASED [None]
